FAERS Safety Report 6782171-5 (Version None)
Quarter: 2010Q2

REPORT INFORMATION
  Report Type: 
  Country: None (occurrence: None)
  Receive Date: 20100621
  Receipt Date: 20100618
  Transmission Date: 20101027
  Serious: Yes (Other)
  Sender: FDA-Public Use
  Company Number: US-RB-000652-10

PATIENT
  Sex: Female

DRUGS (2)
  1. SUBOXONE [Suspect]
     Route: 060
     Dates: start: 20070101
  2. SUBOXONE [Suspect]
     Dosage: UNIT DOSE KNOWN-NO OTHER DOSING DETAILS KNOWN
     Route: 060
     Dates: start: 20100215, end: 20100513

REACTIONS (5)
  - ABDOMINAL PAIN [None]
  - ABORTION SPONTANEOUS [None]
  - DRUG EXPOSURE DURING PREGNANCY [None]
  - DRUG WITHDRAWAL SYNDROME [None]
  - GALLBLADDER DISORDER [None]
